FAERS Safety Report 15451904 (Version 1)
Quarter: 2018Q4

REPORT INFORMATION
  Report Type: Spontaneous
  Country: US (occurrence: US)
  Receive Date: 20181001
  Receipt Date: 20181001
  Transmission Date: 20190204
  Serious: No
  Sender: FDA-Public Use
  Company Number: US-GLAXOSMITHKLINE-US2018173557

PATIENT
  Sex: Female

DRUGS (2)
  1. ADVAIR DISKUS [Suspect]
     Active Substance: FLUTICASONE PROPIONATE\SALMETEROL XINAFOATE
     Indication: ASTHMA
     Dosage: 1 PUFF(S), PRN
     Route: 055
     Dates: start: 1998, end: 2018
  2. TRELEGY ELLIPTA [Suspect]
     Active Substance: FLUTICASONE FUROATE\UMECLIDINIUM BROMIDE\VILANTEROL TRIFENATATE
     Indication: ASTHMA
     Dosage: 1 PUFF(S), QD
     Route: 055
     Dates: start: 201804

REACTIONS (12)
  - Upper-airway cough syndrome [Unknown]
  - Dysphonia [Unknown]
  - Gait disturbance [Unknown]
  - Productive cough [Unknown]
  - Pain [Unknown]
  - Drug ineffective [Unknown]
  - Product use issue [Recovered/Resolved]
  - Cough [Unknown]
  - Arthralgia [Unknown]
  - Rash [Unknown]
  - Reaction to azo-dyes [Unknown]
  - Tongue discomfort [Unknown]

NARRATIVE: CASE EVENT DATE: 1998
